FAERS Safety Report 15979238 (Version 1)
Quarter: 2019Q1

REPORT INFORMATION
  Report Type: Spontaneous
  Country: US (occurrence: US)
  Receive Date: 20190219
  Receipt Date: 20190219
  Transmission Date: 20190418
  Serious: No
  Sender: FDA-Public Use
  Company Number: US-BIOGEN-2019BI00698774

PATIENT
  Age: 59 Year
  Sex: Female

DRUGS (1)
  1. TECFIDERA [Suspect]
     Active Substance: DIMETHYL FUMARATE
     Indication: MULTIPLE SCLEROSIS
     Dosage: TAKE 1 CAPSULE (240MG) BY MOUTH TWICE A DAY.
     Route: 048

REACTIONS (4)
  - Fall [Unknown]
  - Joint injury [Unknown]
  - Balance disorder [Unknown]
  - Accident [Unknown]

NARRATIVE: CASE EVENT DATE: 20190207
